FAERS Safety Report 21549806 (Version 6)
Quarter: 2025Q1

REPORT INFORMATION
  Report Type: Spontaneous
  Country: IN (occurrence: IN)
  Receive Date: 20221103
  Receipt Date: 20250120
  Transmission Date: 20250408
  Serious: Yes (Other)
  Sender: PFIZER
  Company Number: IN-PFIZER INC-202101577130

PATIENT
  Age: 43 Year
  Sex: Female

DRUGS (1)
  1. LORLATINIB [Suspect]
     Active Substance: LORLATINIB
     Dosage: 100 MG, 1X/DAY
     Route: 048
     Dates: start: 202110

REACTIONS (9)
  - Haemoglobin decreased [Unknown]
  - Weight increased [Unknown]
  - Blood cholesterol increased [Unknown]
  - Heart rate increased [Unknown]
  - Insomnia [Unknown]
  - Vomiting [Unknown]
  - Oedema peripheral [Unknown]
  - Eosinophil percentage increased [Unknown]
  - Haematocrit decreased [Unknown]

NARRATIVE: CASE EVENT DATE: 20211029
